APPROVED DRUG PRODUCT: DECADRON
Active Ingredient: DEXAMETHASONE SODIUM PHOSPHATE
Strength: EQ 0.1% PHOSPHATE
Dosage Form/Route: CREAM;TOPICAL
Application: N011983 | Product #002
Applicant: MERCK AND CO INC
Approved: Approved Prior to Jan 1, 1982 | RLD: No | RS: No | Type: DISCN